FAERS Safety Report 4359561-3 (Version None)
Quarter: 2004Q2

REPORT INFORMATION
  Report Type: 
  Country: None (occurrence: None)
  Receive Date: 20040513
  Receipt Date: 20040422
  Transmission Date: 20050107
  Serious: Yes (Hospitalization, Other)
  Sender: FDA-Public Use
  Company Number: 2004023823

PATIENT
  Age: 34 Year
  Sex: Male
  Weight: 85 kg

DRUGS (10)
  1. GEODON [Suspect]
     Indication: PSYCHOTIC DISORDER
     Dosage: 160 MG (2 IN 1 D), ORAL
     Route: 048
     Dates: start: 20040126, end: 20040129
  2. DILTIAZEM [Concomitant]
  3. DIPHENHYDRAMINE HCL [Concomitant]
  4. RISPERDAL [Concomitant]
  5. QUETIAPINE (QUETIAPINE) [Concomitant]
  6. HYDROXYZINE [Concomitant]
  7. BENZATROPINE MESILATE (BENZATROPINE MESILATE) [Concomitant]
  8. PHENOXYMETHYL PENICILLIN [Concomitant]
  9. IBUPROFEN [Concomitant]
  10. ACETAMINOPHEN [Concomitant]

REACTIONS (4)
  - BACK PAIN [None]
  - NEUROLEPTIC MALIGNANT SYNDROME [None]
  - NUCHAL RIGIDITY [None]
  - REFUSAL OF TREATMENT BY PATIENT [None]
